FAERS Safety Report 4606623-9 (Version None)
Quarter: 2005Q2

REPORT INFORMATION
  Report Type: 
  Country: None (occurrence: None)
  Receive Date: 20050223
  Receipt Date: 20040419
  Transmission Date: 20051028
  Serious: Yes (Hospitalization)
  Sender: FDA-Public Use
  Company Number: WAES  0404USA01780

PATIENT

DRUGS (3)
  1. ZOCOR [Suspect]
     Dosage: 80 MG/PO
     Route: 048
     Dates: start: 20030801
  2. LOPID [Suspect]
     Dosage: 600 MG/BID
     Dates: start: 20030801
  3. ZETIA [Concomitant]

REACTIONS (2)
  - RENAL FAILURE CHRONIC [None]
  - RHABDOMYOLYSIS [None]
